FAERS Safety Report 23708133 (Version 6)
Quarter: 2025Q1

REPORT INFORMATION
  Report Type: Spontaneous
  Country: US (occurrence: US)
  Receive Date: 20240404
  Receipt Date: 20250107
  Transmission Date: 20250409
  Serious: Yes (Other)
  Sender: SANOFI AVENTIS
  Company Number: US-SA-SAC20240328001292

PATIENT
  Age: 70 Year
  Sex: Female

DRUGS (27)
  1. KEVZARA [Suspect]
     Active Substance: SARILUMAB
     Indication: Rheumatoid arthritis
     Dosage: 200 MG, QOW
     Route: 058
     Dates: start: 202311
  2. METHOTREXATE [Suspect]
     Active Substance: METHOTREXATE
     Indication: Product used for unknown indication
     Route: 065
  3. FAMOTIDINE [Concomitant]
     Active Substance: FAMOTIDINE
     Route: 065
  4. ACRIVASTINE [Concomitant]
     Active Substance: ACRIVASTINE
     Route: 065
  5. OXYCODONE HYDROCHLORIDE [Concomitant]
     Active Substance: OXYCODONE HYDROCHLORIDE
     Route: 065
  6. ALBUTEROL SULFATE [Concomitant]
     Active Substance: ALBUTEROL SULFATE
     Route: 065
  7. AMLODIPINE BESYLATE [Concomitant]
     Active Substance: AMLODIPINE BESYLATE
     Route: 065
  8. CYCLOBENZAPRINE [Concomitant]
     Active Substance: CYCLOBENZAPRINE
     Route: 065
  9. DICYCLOMINE HYDROCHLORIDE [Concomitant]
     Active Substance: DICYCLOMINE HYDROCHLORIDE
     Route: 065
  10. FOLIC ACID [Concomitant]
     Active Substance: FOLIC ACID
     Route: 065
  11. MELOXICAM [Concomitant]
     Active Substance: MELOXICAM
     Route: 065
  12. HYDRALAZINE HCL [Concomitant]
     Active Substance: HYDRALAZINE HYDROCHLORIDE
     Route: 065
  13. HYDROCHLOROTHIAZIDE [Concomitant]
     Active Substance: HYDROCHLOROTHIAZIDE
     Route: 065
  14. IBUPROFEN [Concomitant]
     Active Substance: IBUPROFEN
     Route: 065
  15. SPIRONOLACTONE [Concomitant]
     Active Substance: SPIRONOLACTONE
     Route: 065
  16. METOPROLOL TARTRATE [Concomitant]
     Active Substance: METOPROLOL TARTRATE
     Route: 065
  17. RANITIDINE HYDROCHLORIDE [Concomitant]
     Active Substance: RANITIDINE HYDROCHLORIDE
     Route: 065
  18. FLUCONAZOLE [Concomitant]
     Active Substance: FLUCONAZOLE
     Route: 065
  19. METHOCARBAMOL [Concomitant]
     Active Substance: METHOCARBAMOL
     Route: 065
  20. AMOXICILLIN [Concomitant]
     Active Substance: AMOXICILLIN
     Route: 065
  21. ACETAMINOPHEN\HYDROCODONE [Concomitant]
     Active Substance: ACETAMINOPHEN\HYDROCODONE
     Route: 065
  22. CYMBALTA [Concomitant]
     Active Substance: DULOXETINE HYDROCHLORIDE
     Route: 065
  23. LOSARTAN POTASSIUM [Concomitant]
     Active Substance: LOSARTAN POTASSIUM
     Route: 065
  24. ALBUTEROL [Concomitant]
     Active Substance: ALBUTEROL
     Route: 065
  25. ACETAMINOPHEN [Concomitant]
     Active Substance: ACETAMINOPHEN
     Route: 065
  26. ALBUTEROL SULFATE [Concomitant]
     Active Substance: ALBUTEROL SULFATE
     Route: 065
  27. TYLENOL [Concomitant]
     Active Substance: ACETAMINOPHEN
     Route: 065

REACTIONS (38)
  - Lumbar vertebral fracture [Not Recovered/Not Resolved]
  - Hip fracture [Not Recovered/Not Resolved]
  - Blindness [Not Recovered/Not Resolved]
  - Pain in extremity [Not Recovered/Not Resolved]
  - Depression [Not Recovered/Not Resolved]
  - Insomnia [Not Recovered/Not Resolved]
  - Feeling abnormal [Unknown]
  - Decreased appetite [Not Recovered/Not Resolved]
  - Disturbance in attention [Unknown]
  - Fatigue [Unknown]
  - Dyspnoea [Not Recovered/Not Resolved]
  - Psychiatric symptom [Unknown]
  - Arthralgia [Not Recovered/Not Resolved]
  - Pulmonary mass [Unknown]
  - Rash pruritic [Unknown]
  - Hypertension [Unknown]
  - Miliaria [Not Recovered/Not Resolved]
  - Dizziness [Not Recovered/Not Resolved]
  - Peripheral swelling [Not Recovered/Not Resolved]
  - Paraesthesia [Not Recovered/Not Resolved]
  - Musculoskeletal stiffness [Not Recovered/Not Resolved]
  - Costochondritis [Not Recovered/Not Resolved]
  - Eye colour change [Not Recovered/Not Resolved]
  - Bedridden [Not Recovered/Not Resolved]
  - Road traffic accident [Not Recovered/Not Resolved]
  - Muscle atrophy [Not Recovered/Not Resolved]
  - Bone pain [Not Recovered/Not Resolved]
  - Back pain [Unknown]
  - Gait disturbance [Unknown]
  - Dyspnoea exertional [Unknown]
  - Back disorder [Unknown]
  - Loss of personal independence in daily activities [Unknown]
  - Balance disorder [Unknown]
  - Limb asymmetry [Unknown]
  - Pain [Unknown]
  - Alopecia [Unknown]
  - Tooth infection [Unknown]
  - Product dose omission in error [Unknown]

NARRATIVE: CASE EVENT DATE: 20240101
